FAERS Safety Report 19264142 (Version 5)
Quarter: 2021Q3

REPORT INFORMATION
  Report Type: Spontaneous
  Country: US (occurrence: US)
  Receive Date: 20210517
  Receipt Date: 20210831
  Transmission Date: 20211014
  Serious: Yes (Hospitalization)
  Sender: FDA-Public Use
  Company Number: US-SA-2021SA161390

PATIENT
  Age: 15 Month
  Sex: Male

DRUGS (1)
  1. LUMIZYME [Suspect]
     Active Substance: ALGLUCOSIDASE ALFA
     Indication: GLYCOGEN STORAGE DISEASE TYPE II
     Dosage: 350 MG, QW
     Route: 050
     Dates: start: 20210408

REACTIONS (9)
  - SARS-CoV-2 test positive [Unknown]
  - Head injury [Unknown]
  - Pyrexia [Unknown]
  - Body temperature increased [Unknown]
  - Product use issue [Unknown]
  - Fall [Unknown]
  - Illness [Unknown]
  - Inappropriate schedule of product administration [Unknown]
  - COVID-19 [Unknown]

NARRATIVE: CASE EVENT DATE: 20210601
